FAERS Safety Report 4420841-4 (Version None)
Quarter: 2004Q3

REPORT INFORMATION
  Report Type: 
  Country: None (occurrence: None)
  Receive Date: 20040809
  Receipt Date: 20040727
  Transmission Date: 20050211
  Serious: Yes (Death)
  Sender: FDA-Public Use
  Company Number: US-JNJFOC-20040502735

PATIENT
  Sex: Female
  Weight: 82.1 kg

DRUGS (12)
  1. DURAGESIC [Suspect]
     Route: 065
  2. DURAGESIC [Suspect]
     Route: 065
  3. DURAGESIC [Suspect]
     Route: 065
  4. DURAGESIC [Suspect]
     Route: 065
  5. VALIUM [Suspect]
     Indication: DRUG USE FOR UNKNOWN INDICATION
     Dosage: ONE HALF TABLET TWICE DAILY
  6. HALCION [Suspect]
     Indication: DRUG USE FOR UNKNOWN INDICATION
     Dosage: AS NEEDED
  7. OXYCONTIN [Suspect]
     Indication: PAIN
     Dosage: AS NEEDED
  8. INDERAL LA [Concomitant]
  9. LITHIUM CARBONATE [Concomitant]
  10. LUVOX [Concomitant]
  11. NEURONTIN [Concomitant]
     Dosage: 400 MG TWICE DAILY AND 800 MG AT BEDTIME
  12. NORFLEX [Concomitant]

REACTIONS (4)
  - DRUG TOXICITY [None]
  - OVERDOSE [None]
  - PAIN EXACERBATED [None]
  - SPEECH DISORDER [None]
